FAERS Safety Report 17906976 (Version 1)
Quarter: 2020Q2

REPORT INFORMATION
  Report Type: Spontaneous
  Country: US (occurrence: US)
  Receive Date: 20200617
  Receipt Date: 20200617
  Transmission Date: 20200714
  Serious: Yes (Other)
  Sender: FDA-Public Use
  Company Number: None

PATIENT
  Age: 23 Year
  Weight: 88.45 kg

DRUGS (3)
  1. ONE-A-DAY BRAND MULTIVITAMIN [Concomitant]
  2. PROAIR RESPICLICK [Suspect]
     Active Substance: ALBUTEROL SULFATE
  3. PROAIR RESPICLICK ALBUTEROL SULFATE INHALATION POWDER [Concomitant]

REACTIONS (2)
  - Asthma [None]
  - Device delivery system issue [None]
